FAERS Safety Report 11501970 (Version 3)
Quarter: 2015Q4

REPORT INFORMATION
  Report Type: Spontaneous
  Country: None (occurrence: TR)
  Receive Date: 20150914
  Receipt Date: 20151216
  Transmission Date: 20160304
  Serious: Yes (Other)
  Sender: FDA-Public Use
  Company Number: TR-MERCK KGAA-1041915

PATIENT

DRUGS (1)
  1. NOVOTHYROX [Suspect]
     Active Substance: LEVOTHYROXINE SODIUM

REACTIONS (12)
  - Injection site bruising [None]
  - Stress [None]
  - Eye pain [None]
  - Headache [None]
  - Injection site erythema [None]
  - Intracranial pressure increased [None]
  - Ear discomfort [None]
  - Muscle contractions involuntary [None]
  - Injection site mass [None]
  - Paraesthesia [None]
  - Asthenia [None]
  - Burning sensation [None]
